FAERS Safety Report 9409939 (Version 5)
Quarter: 2013Q4

REPORT INFORMATION
  Report Type: Report from Study
  Country: US (occurrence: US)
  Receive Date: 20130719
  Receipt Date: 20131113
  Transmission Date: 20140711
  Serious: Yes (Hospitalization, Other)
  Sender: FDA-Public Use
  Company Number: US-JNJFOC-20130708566

PATIENT
  Age: 16 Year
  Sex: Male
  Weight: 43.9 kg

DRUGS (2)
  1. REMICADE [Suspect]
     Indication: INFLAMMATORY BOWEL DISEASE
     Route: 042
     Dates: start: 20040414
  2. HYDROCORTISONE [Concomitant]
     Route: 065

REACTIONS (2)
  - Anal stenosis [Recovered/Resolved with Sequelae]
  - Rectal perforation [Recovered/Resolved with Sequelae]
